FAERS Safety Report 7987915-2 (Version None)
Quarter: 2011Q4

REPORT INFORMATION
  Report Type: 
  Country: None (occurrence: None)
  Receive Date: 20111216
  Receipt Date: 20101116
  Transmission Date: 20120403
  Serious: No
  Sender: FDA-Public Use
  Company Number: US-BRISTOL-MYERS SQUIBB COMPANY-15389596

PATIENT
  Age: 74 Year
  Sex: Male

DRUGS (5)
  1. LORAZEPAM [Concomitant]
     Dosage: AS NEEDED
  2. ABILIFY [Suspect]
  3. LAMICTAL [Concomitant]
  4. WELLBUTRIN SR [Concomitant]
     Dosage: MRNG
  5. LAMOTRIGINE [Concomitant]

REACTIONS (1)
  - TARDIVE DYSKINESIA [None]
